FAERS Safety Report 24573769 (Version 1)
Quarter: 2024Q4

REPORT INFORMATION
  Report Type: Spontaneous
  Country: US (occurrence: US)
  Receive Date: 20241103
  Receipt Date: 20241103
  Transmission Date: 20250115
  Serious: No
  Sender: NOVARTIS
  Company Number: US-002147023-NVSC2024US211925

PATIENT
  Sex: Male

DRUGS (2)
  1. LEQVIO [Suspect]
     Active Substance: INCLISIRAN SODIUM
     Indication: Hyperlipidaemia
     Dosage: UNK (FIRST INJECTION, THEN THREE MONTHS, THEN SIX MONTHS)
     Route: 058
     Dates: start: 20230605, end: 20240212
  2. LEQVIO [Suspect]
     Active Substance: INCLISIRAN SODIUM
     Indication: Arteriosclerosis

REACTIONS (4)
  - Muscle discomfort [Unknown]
  - Fatigue [Unknown]
  - Dizziness [Unknown]
  - Tremor [Unknown]
